FAERS Safety Report 13121297 (Version 1)
Quarter: 2017Q1

REPORT INFORMATION
  Report Type: Spontaneous
  Country: FR (occurrence: FR)
  Receive Date: 20170117
  Receipt Date: 20170117
  Transmission Date: 20170428
  Serious: Yes (Hospitalization, Other)
  Sender: FDA-Public Use
  Company Number: FR-VIIV HEALTHCARE LIMITED-FR2017GSK004378

PATIENT
  Age: 47 Year
  Sex: Male

DRUGS (3)
  1. INTELENCE [Suspect]
     Active Substance: ETRAVIRINE
     Indication: HIV INFECTION WHO CLINICAL STAGE IV
     Dosage: 200 MG, BID
     Route: 048
     Dates: start: 20140603, end: 20160829
  2. TIVICAY [Suspect]
     Active Substance: DOLUTEGRAVIR SODIUM
     Indication: HIV INFECTION WHO CLINICAL STAGE IV
     Dosage: 50 MG, 1D
     Route: 048
     Dates: start: 20140603, end: 20160829
  3. TRUVADA [Suspect]
     Active Substance: EMTRICITABINE\TENOFOVIR DISOPROXIL FUMARATE
     Indication: HIV INFECTION WHO CLINICAL STAGE IV
     Dosage: 1 DF, QD
     Route: 048
     Dates: start: 20140603, end: 20160829

REACTIONS (3)
  - Treatment noncompliance [Recovered/Resolved]
  - HIV infection [Recovered/Resolved]
  - Therapy cessation [Recovered/Resolved]

NARRATIVE: CASE EVENT DATE: 20160829
